FAERS Safety Report 20911919 (Version 1)
Quarter: 2022Q2

REPORT INFORMATION
  Report Type: Spontaneous
  Country: US (occurrence: None)
  Receive Date: 20220603
  Receipt Date: 20220603
  Transmission Date: 20220720
  Serious: No
  Sender: FDA-Public Use
  Company Number: None

PATIENT
  Age: 81 Year
  Sex: Male
  Weight: 58.51 kg

DRUGS (22)
  1. LENALIDOMIDE [Suspect]
     Active Substance: LENALIDOMIDE
     Indication: Plasma cell myeloma
     Dosage: OTHER FREQUENCY : 14DOF21DAYS;?
     Route: 048
     Dates: start: 20220405
  2. CALCIUM CARBONATE-VITAMIN D [Concomitant]
  3. CARVEDILOL [Concomitant]
     Active Substance: CARVEDILOL
  4. CETRIZINE [Concomitant]
  5. COLESTIPOL [Concomitant]
  6. CYCLOBENZAPRINE [Concomitant]
  7. DONEPEIL [Concomitant]
  8. GABAPENTIN [Concomitant]
  9. HYDRALAZINE [Concomitant]
  10. MELATONIN [Concomitant]
     Active Substance: MELATONIN
  11. MIRTAZAPINE [Concomitant]
  12. MULTIVITAMIN [Concomitant]
  13. PANTOPRAZOLE [Concomitant]
  14. PREDNISONE [Concomitant]
  15. SEPTR DS [Concomitant]
  16. TAMSULOSIN [Concomitant]
  17. TRAZODONE [Concomitant]
  18. VISBIOME [Concomitant]
  19. VITAMIN C [Concomitant]
     Active Substance: ASCORBIC ACID
  20. VITAMIN D3 [Concomitant]
  21. VITAMIN E [Concomitant]
  22. ZINC [Concomitant]

REACTIONS (1)
  - COVID-19 [None]
